FAERS Safety Report 8152318-7 (Version None)
Quarter: 2012Q1

REPORT INFORMATION
  Report Type: 
  Country: None (occurrence: None)
  Receive Date: 20120221
  Receipt Date: 20120215
  Transmission Date: 20120608
  Serious: Yes (Other)
  Sender: FDA-Public Use
  Company Number: US-BAYER-2012-016377

PATIENT
  Sex: Female
  Weight: 65 kg

DRUGS (2)
  1. YASMIN [Suspect]
     Indication: CONTRACEPTION
     Dosage: UNK
     Dates: start: 20071001, end: 20100901
  2. ASCORBIC ACID [Concomitant]
     Dosage: UNK UNK, PRN

REACTIONS (7)
  - CEREBROVASCULAR ACCIDENT [None]
  - DYSARTHRIA [None]
  - HEADACHE [None]
  - AMNESIA [None]
  - PAIN IN EXTREMITY [None]
  - ABDOMINAL PAIN [None]
  - ASTHENIA [None]
